FAERS Safety Report 6081727-5 (Version None)
Quarter: 2009Q1

REPORT INFORMATION
  Report Type: 
  Country: None (occurrence: None)
  Receive Date: 20090218
  Receipt Date: 20090213
  Transmission Date: 20090719
  Serious: Yes (Death, Hospitalization)
  Sender: FDA-Public Use
  Company Number: US-ABBOTT-08P-163-0491884-00

PATIENT
  Sex: Male
  Weight: 74.91 kg

DRUGS (19)
  1. HUMIRA [Suspect]
     Indication: RHEUMATOID ARTHRITIS
     Dates: start: 20030101
  2. SIMVASTATIN [Concomitant]
     Indication: BLOOD CHOLESTEROL
  3. FOLIC ACID [Concomitant]
     Indication: DRUG USE FOR UNKNOWN INDICATION
  4. ARAVA [Concomitant]
     Indication: DRUG USE FOR UNKNOWN INDICATION
  5. METOPROLOL SUCCINATE [Concomitant]
     Indication: BLOOD PRESSURE
  6. LISINOPRIL [Concomitant]
     Indication: BLOOD PRESSURE
  7. NIFIDICAL XL [Concomitant]
     Indication: BLOOD PRESSURE
  8. ASPIRIN [Concomitant]
     Indication: DRUG USE FOR UNKNOWN INDICATION
  9. NEXIUM [Concomitant]
     Indication: GASTRIC DISORDER
  10. SERTRALINE HYDROCHLORIDE [Concomitant]
     Indication: ANXIETY
  11. TEMAZEPAM [Concomitant]
     Indication: SLEEP DISORDER
  12. M.V.I. [Concomitant]
     Indication: DRUG USE FOR UNKNOWN INDICATION
  13. CALCIUM [Concomitant]
     Indication: DRUG USE FOR UNKNOWN INDICATION
  14. FERROUS SULFATE TAB [Concomitant]
     Indication: DRUG USE FOR UNKNOWN INDICATION
  15. HYDROCODONE BITARTRATE [Concomitant]
     Indication: PAIN
  16. FLOMAX [Concomitant]
     Indication: BLADDER DISORDER
  17. ALBUTEROL SULFATE [Concomitant]
     Indication: DRUG USE FOR UNKNOWN INDICATION
     Route: 055
  18. IPRATROPIUM BROMIDE [Concomitant]
     Indication: DRUG USE FOR UNKNOWN INDICATION
  19. PULMICORT RESPULES [Concomitant]
     Indication: DRUG USE FOR UNKNOWN INDICATION

REACTIONS (4)
  - ASTHENIA [None]
  - OEDEMA PERIPHERAL [None]
  - PNEUMONIA [None]
  - RESPIRATORY FAILURE [None]
